FAERS Safety Report 8335116-0 (Version None)
Quarter: 2012Q2

REPORT INFORMATION
  Report Type: 
  Country: None (occurrence: None)
  Receive Date: 20120503
  Receipt Date: 20120419
  Transmission Date: 20120825
  Serious: Yes (Hospitalization, Congenital Anomaly, Other)
  Sender: FDA-Public Use
  Company Number: US-JNJFOC-20120311337

PATIENT
  Sex: Male
  Weight: 3.66 kg

DRUGS (1)
  1. TOPAMAX [Suspect]
     Indication: FOETAL EXPOSURE DURING PREGNANCY
     Route: 064
     Dates: start: 20090101, end: 20100101

REACTIONS (11)
  - CERUMEN IMPACTION [None]
  - GENITAL RASH [None]
  - DYSURIA [None]
  - SINUSITIS [None]
  - ADENOIDAL HYPERTROPHY [None]
  - DERMOID CYST [None]
  - TINEA CRURIS [None]
  - UPPER RESPIRATORY TRACT INFECTION [None]
  - EAR INFECTION [None]
  - DACRYOSTENOSIS CONGENITAL [None]
  - RASH PAPULAR [None]
